FAERS Safety Report 4712696-5 (Version None)
Quarter: 2005Q3

REPORT INFORMATION
  Report Type: 
  Country: None (occurrence: None)
  Receive Date: 20050701
  Receipt Date: 20040818
  Transmission Date: 20060218
  Serious: Yes (Hospitalization, Other)
  Sender: FDA-Public Use
  Company Number: 2004057211

PATIENT
  Age: 58 Year
  Sex: Female
  Weight: 45.3597 kg

DRUGS (7)
  1. ZOLOFT [Suspect]
     Indication: ANXIETY
     Dosage: 50 MG (50 MG, 1 IN 1 D), ORAL
     Route: 048
     Dates: start: 20040101
  2. ZOLOFT [Suspect]
     Indication: DEPRESSION
     Dosage: 50 MG (50 MG, 1 IN 1 D), ORAL
     Route: 048
     Dates: start: 20040101
  3. OLANZAPINE [Concomitant]
  4. CLONAZEPAM [Concomitant]
  5. SIMVASTATIN [Concomitant]
  6. ASPIRIN [Concomitant]
  7. CENTRUM (MINERALS NOS, VITAMINS NOS) [Concomitant]

REACTIONS (6)
  - ACCIDENTAL OVERDOSE [None]
  - BIPOLAR DISORDER [None]
  - DEMENTIA ALZHEIMER'S TYPE [None]
  - HALLUCINATION [None]
  - INCREASED APPETITE [None]
  - WEIGHT INCREASED [None]
